FAERS Safety Report 9547705 (Version 1)
Quarter: 2013Q2

REPORT INFORMATION
  Report Type: Spontaneous
  Country: US (occurrence: None)
  Receive Date: 20130606
  Receipt Date: 20130606
  Transmission Date: 20140414
  Serious: Yes (Other)
  Sender: FDA-Public Use
  Company Number: 163-POMAL-13033102

PATIENT
  Age: 73 Year
  Sex: Female
  Weight: 78.02 kg

DRUGS (4)
  1. POMALYST [Suspect]
     Indication: PLASMA CELL MYELOMA
     Dosage: 4 MG, 21 IN 21 D, PO
     Route: 048
     Dates: start: 20130220, end: 20130319
  2. ASA (ACETYLSALICYLIC ACID) ( UNKNOWN) [Concomitant]
  3. DEXAMETHASONE ( DEXAMETHASONE) ( UNKNOWN) [Concomitant]
  4. ARANESP ( DARBEPOETIN ALFA) ( UNKNOWN) [Concomitant]

REACTIONS (2)
  - Neutropenia [None]
  - Thrombocytopenia [None]
